FAERS Safety Report 9062014 (Version 1)
Quarter: 2013Q1

REPORT INFORMATION
  Report Type: Spontaneous
  Country: US (occurrence: US)
  Receive Date: 20130127
  Receipt Date: 20130127
  Transmission Date: 20140127
  Serious: No
  Sender: FDA-Public Use
  Company Number: US-ALLERGAN-1209931US

PATIENT
  Sex: Female

DRUGS (4)
  1. PRED FORTE [Suspect]
     Indication: POSTOPERATIVE CARE
     Dosage: 4 TIMES A DAY IN RIGHT EYE
     Route: 047
     Dates: start: 20120308
  2. PRED FORTE [Suspect]
     Indication: CONJUNCTIVITIS
  3. TEARS NATURALE II [Concomitant]
     Indication: EYE LUBRICATION THERAPY
     Route: 047
  4. LUBRICATING EYE DROPS UNSPECIFIED [Concomitant]
     Indication: EYE LUBRICATION THERAPY
     Dosage: UNK
     Route: 047

REACTIONS (1)
  - Ocular hyperaemia [Not Recovered/Not Resolved]
